FAERS Safety Report 6181310-7 (Version None)
Quarter: 2009Q2

REPORT INFORMATION
  Report Type: 
  Country: None (occurrence: None)
  Receive Date: 20090504
  Receipt Date: 20090421
  Transmission Date: 20091009
  Serious: Yes (Death)
  Sender: FDA-Public Use
  Company Number: 006237

PATIENT
  Age: 64 Year
  Sex: Female

DRUGS (2)
  1. PLETAL [Suspect]
     Dosage: 100 MG, ORAL
     Route: 048
  2. ACETYLSALICYLIC ACID SRT [Concomitant]

REACTIONS (1)
  - CARDIAC DISORDER [None]
